FAERS Safety Report 9874419 (Version 2)
Quarter: 2014Q1

REPORT INFORMATION
  Report Type: Spontaneous
  Country: US (occurrence: US)
  Receive Date: 20140206
  Receipt Date: 20140214
  Transmission Date: 20141002
  Serious: Yes (Other)
  Sender: FDA-Public Use
  Company Number: US-009507513-1402USA001007

PATIENT
  Sex: Male

DRUGS (3)
  1. DULERA [Suspect]
     Dosage: 200/5MCG, TWICE DAILY
     Route: 055
  2. DULERA [Suspect]
     Dosage: 100/5MCG, TWICE DAILY
     Route: 055
  3. DULERA [Suspect]
     Dosage: 100/5MCG ONCE DAILY
     Route: 055

REACTIONS (5)
  - Aphonia [Recovered/Resolved]
  - Aphonia [Unknown]
  - Aphonia [Unknown]
  - Inappropriate schedule of drug administration [Unknown]
  - Oropharyngeal pain [Unknown]
